FAERS Safety Report 4509686-4 (Version None)
Quarter: 2004Q4

REPORT INFORMATION
  Report Type: 
  Country: None (occurrence: None)
  Receive Date: 20041124
  Receipt Date: 20041116
  Transmission Date: 20050328
  Serious: Yes (Hospitalization)
  Sender: FDA-Public Use
  Company Number: US-JNJFOC-20040906249

PATIENT
  Age: 68 Year
  Sex: Female

DRUGS (7)
  1. DURAGESIC [Suspect]
     Route: 062
     Dates: start: 20040301
  2. DIAZEPAM [Concomitant]
     Route: 049
  3. VICODIN [Concomitant]
  4. VICODIN [Concomitant]
     Indication: PAIN
  5. DETROL [Concomitant]
     Indication: URINARY INCONTINENCE
  6. ELAVIL [Concomitant]
     Indication: SLEEP DISORDER THERAPY
     Route: 049
  7. TRAZODONE HCL [Concomitant]
     Indication: SLEEP DISORDER THERAPY
     Dosage: ONE HALF TABLET DAILY
     Route: 049

REACTIONS (4)
  - FALL [None]
  - FOOT FRACTURE [None]
  - MEDICATION ERROR [None]
  - PNEUMONIA [None]
